FAERS Safety Report 10699930 (Version 3)
Quarter: 2015Q1

REPORT INFORMATION
  Report Type: Other
  Country: IT (occurrence: IT)
  Receive Date: 20141028
  Receipt Date: 20150217
  Transmission Date: 20150721
  Serious: Yes (Hospitalization, Other)
  Sender: FDA-Public Use
  Company Number: IT-APOTEX-2014AP003418

PATIENT
  Age: 46 Year
  Sex: Female

DRUGS (3)
  1. CITALOPRAM [Suspect]
     Active Substance: CITALOPRAM HYDROBROMIDE
     Indication: INTENTIONAL SELF-INJURY
     Dosage: 20 DF, SINGLE
     Route: 048
     Dates: start: 20140515, end: 20140515
  2. ALCOHOL. [Concomitant]
     Active Substance: ALCOHOL
     Indication: PRODUCT USED FOR UNKNOWN INDICATION
     Dosage: UNKNOWN
  3. ZOLPIDEM [Suspect]
     Active Substance: ZOLPIDEM\ZOLPIDEM TARTRATE
     Indication: PRODUCT USED FOR UNKNOWN INDICATION
     Dosage: 10 DF, SINGLE
     Route: 048
     Dates: start: 20140515, end: 20140515

REACTIONS (2)
  - Intentional self-injury [Unknown]
  - Sopor [Unknown]

NARRATIVE: CASE EVENT DATE: 20140515
